FAERS Safety Report 8340318-3 (Version None)
Quarter: 2012Q2

REPORT INFORMATION
  Report Type: 
  Country: None (occurrence: None)
  Receive Date: 20120507
  Receipt Date: 20120507
  Transmission Date: 20120825
  Serious: Yes (Life-Threatening, Hospitalization)
  Sender: FDA-Public Use
  Company Number: None

PATIENT
  Age: 65 Year
  Sex: Male
  Weight: 125.9 kg

DRUGS (1)
  1. LISINOPRIL [Suspect]
     Indication: HYPERTENSION
     Dosage: |DOSAGETEXT: 10 MG||STRENGTH: 10 MG||FREQ: DAILY||ROUTE: ORAL|
     Route: 048
     Dates: start: 20030104, end: 20120428

REACTIONS (1)
  - ANGIOEDEMA [None]
